FAERS Safety Report 5842741-5 (Version None)
Quarter: 2008Q3

REPORT INFORMATION
  Report Type: 
  Country: None (occurrence: None)
  Receive Date: 20080808
  Receipt Date: 20080730
  Transmission Date: 20090109
  Serious: Yes (Death, Hospitalization, Other)
  Sender: FDA-Public Use
  Company Number: 19890

PATIENT
  Age: 26 Year
  Sex: Male

DRUGS (5)
  1. VINCRISTINE [Suspect]
     Indication: LYMPHOMA
  2. CYCLOPHOSPHAMIDE [Suspect]
     Indication: LYMPHOMA
  3. DOXORUBICIN HCL [Suspect]
     Indication: LYMPHOMA
  4. PREDNISONE TAB [Suspect]
     Indication: DISEASE RECURRENCE
  5. PREDNISONE TAB [Suspect]
     Indication: LYMPHOMA

REACTIONS (3)
  - DEPRESSED LEVEL OF CONSCIOUSNESS [None]
  - FEBRILE NEUTROPENIA [None]
  - LEUKOENCEPHALOPATHY [None]
